FAERS Safety Report 22725613 (Version 4)
Quarter: 2023Q4

REPORT INFORMATION
  Report Type: Spontaneous
  Country: IN (occurrence: IN)
  Receive Date: 20230719
  Receipt Date: 20231003
  Transmission Date: 20240109
  Serious: Yes (Hospitalization)
  Sender: FDA-Public Use
  Company Number: IN-PFIZER INC-PV202300075555

PATIENT
  Age: 67 Year
  Sex: Female

DRUGS (14)
  1. PALBOCICLIB [Suspect]
     Active Substance: PALBOCICLIB
     Dosage: ONCE DAILY DAY 1 - 21 EVERY 28 DAYS WITH FOOD
     Route: 048
     Dates: start: 201908
  2. PALBOCICLIB [Suspect]
     Active Substance: PALBOCICLIB
     Dosage: FOR 21 DAYS
     Route: 048
  3. PALBOCICLIB [Suspect]
     Active Substance: PALBOCICLIB
     Dosage: 125 MG, CYCLIC (3 WEEKS ON FOLLOWED BY 1 WEEK OFF)
     Route: 048
  4. LETROZOLE [Concomitant]
     Active Substance: LETROZOLE
     Dosage: FOR 4 MONTHS
     Dates: start: 201908
  5. ZOLEDRONIC ACID [Concomitant]
     Active Substance: ZOLEDRONIC ACID
     Dosage: UNK
     Dates: start: 201908
  6. ZOLEDRONIC ACID [Concomitant]
     Active Substance: ZOLEDRONIC ACID
     Dosage: RECD ZOLDRIA IN 3/22
     Dates: start: 202203
  7. ZOLEDRONIC ACID [Concomitant]
     Active Substance: ZOLEDRONIC ACID
     Dosage: 3 MONTHLY ZOLDRIA RECD ON 26/12/22
     Dates: start: 20221226
  8. ZOLEDRONIC ACID [Concomitant]
     Active Substance: ZOLEDRONIC ACID
     Dosage: 3 MONTHLY ZOLEDRONIC ACID
  9. ZOLEDRONIC ACID [Concomitant]
     Active Substance: ZOLEDRONIC ACID
     Dosage: 4 MG
     Dates: start: 20230629
  10. ZOLEDRONIC ACID [Concomitant]
     Active Substance: ZOLEDRONIC ACID
     Dosage: 4 MG
     Route: 042
     Dates: start: 20230918
  11. LEVOTHYROXINE [Concomitant]
     Active Substance: LEVOTHYROXINE
     Indication: Hypothyroidism
     Dosage: 100 UG
  12. FULVESTRANT [Concomitant]
     Active Substance: FULVESTRANT
     Dosage: UNK
     Dates: start: 20230821
  13. FULVESTRANT [Concomitant]
     Active Substance: FULVESTRANT
     Dosage: UNK
     Dates: start: 20230904
  14. FULVESTRANT [Concomitant]
     Active Substance: FULVESTRANT
     Dosage: 500 MG
     Route: 030
     Dates: start: 20230918

REACTIONS (9)
  - Bone disorder [Unknown]
  - Eastern Cooperative Oncology Group performance status abnormal [Unknown]
  - Upper respiratory tract infection [Unknown]
  - Asthma [Unknown]
  - Hypertension [Unknown]
  - Hepatomegaly [Unknown]
  - Hepatic steatosis [Unknown]
  - Neoplasm progression [Unknown]
  - Pyrexia [Unknown]

NARRATIVE: CASE EVENT DATE: 20191203
